FAERS Safety Report 14969854 (Version 1)
Quarter: 2018Q2

REPORT INFORMATION
  Report Type: Spontaneous
  Country: AU (occurrence: AU)
  Receive Date: 20180604
  Receipt Date: 20180604
  Transmission Date: 20180711
  Serious: Yes (Hospitalization)
  Sender: FDA-Public Use
  Company Number: AU-MYLANLABS-2018M1036378

PATIENT
  Age: 83 Year
  Sex: Male

DRUGS (1)
  1. PREDNISOLONE. [Suspect]
     Active Substance: PREDNISOLONE
     Indication: PRODUCT USED FOR UNKNOWN INDICATION
     Dosage: WEANING DOSE
     Route: 065

REACTIONS (5)
  - Bacterial disease carrier [Recovered/Resolved]
  - Arthritis bacterial [Recovered/Resolved]
  - Sepsis [Recovered/Resolved]
  - Herpes zoster [Recovered/Resolved]
  - Beta haemolytic streptococcal infection [Recovered/Resolved]
